FAERS Safety Report 25677696 (Version 2)
Quarter: 2025Q4

REPORT INFORMATION
  Report Type: Spontaneous
  Country: US (occurrence: US)
  Receive Date: 20250813
  Receipt Date: 20251017
  Transmission Date: 20260118
  Serious: Yes (Hospitalization)
  Sender: Unknown Manufacturer
  Company Number: US-HUMACYTE GLOBAL, INC.-US-2025-ATEV-00003

PATIENT

DRUGS (1)
  1. SYMVESS [Suspect]
     Active Substance: ACELLULAR TISSUE ENGINEERED VESSEL
     Indication: Peripheral arterial occlusive disease
     Dosage: UNK
     Dates: start: 20250729, end: 20250731

REACTIONS (3)
  - Vascular graft complication [Recovering/Resolving]
  - Post procedural haematoma [Recovering/Resolving]
  - Off label use [Unknown]

NARRATIVE: CASE EVENT DATE: 20250729
